FAERS Safety Report 5073530-X (Version None)
Quarter: 2006Q3

REPORT INFORMATION
  Report Type: 
  Country: None (occurrence: None)
  Receive Date: 20060717
  Receipt Date: 20051216
  Transmission Date: 20061208
  Serious: No
  Sender: FDA-Public Use
  Company Number: 2005002408

PATIENT
  Age: 74 Year
  Sex: Female

DRUGS (7)
  1. TARCEVA [Suspect]
     Indication: LUNG NEOPLASM MALIGNANT
     Dosage: 150 MG (QD), ORAL
     Route: 048
     Dates: start: 20050801
  2. ADVAIR (SALBUTAMOL) [Concomitant]
  3. ZOLOFT [Concomitant]
  4. OXYCONTIN (OXYCODONE HYDROCHORIDE) [Concomitant]
  5. ZOMETA [Concomitant]
  6. PRILOSEC [Concomitant]
  7. TAXOTERE [Concomitant]

REACTIONS (4)
  - DRY SKIN [None]
  - OEDEMA PERIPHERAL [None]
  - PRURITUS [None]
  - SKIN FISSURES [None]
